FAERS Safety Report 17589836 (Version 4)
Quarter: 2021Q3

REPORT INFORMATION
  Report Type: Spontaneous
  Country: US (occurrence: US)
  Receive Date: 20200327
  Receipt Date: 20210823
  Transmission Date: 20211014
  Serious: No
  Sender: FDA-Public Use
  Company Number: US-ALLERGAN-1952469US

PATIENT
  Sex: Male
  Weight: 101.13 kg

DRUGS (6)
  1. CARTEOLOL HYDROCHLORIDE. [Suspect]
     Active Substance: CARTEOLOL HYDROCHLORIDE
     Indication: GLAUCOMA
     Dosage: 1 GTT, BID
  2. KETOROLAC TROMETHAMINE 0.5% [Suspect]
     Active Substance: KETOROLAC TROMETHAMINE
     Indication: RETINAL DISORDER
     Dosage: 1 GTT, TID
     Dates: start: 201911
  3. LUMIGAN [Suspect]
     Active Substance: BIMATOPROST
     Indication: GLAUCOMA
     Dosage: 1 GTT, QHS
  4. PHOSPHOLINE IODIDE [Suspect]
     Active Substance: ECHOTHIOPHATE IODIDE
     Indication: INTRAOCULAR PRESSURE INCREASED
     Dosage: 1 GTT, BID
     Dates: start: 201705
  5. ACETAZOLAMIDE. [Suspect]
     Active Substance: ACETAZOLAMIDE
     Indication: GLAUCOMA
     Dosage: 125 MG, TID
  6. DUREZOL [Suspect]
     Active Substance: DIFLUPREDNATE
     Indication: RETINAL DISORDER
     Dosage: 1 GTT, QD

REACTIONS (1)
  - Visual impairment [Not Recovered/Not Resolved]

NARRATIVE: CASE EVENT DATE: 2017
